FAERS Safety Report 6672384-5 (Version None)
Quarter: 2010Q2

REPORT INFORMATION
  Report Type: 
  Country: None (occurrence: None)
  Receive Date: 20100406
  Receipt Date: 20100322
  Transmission Date: 20101027
  Serious: Yes (Hospitalization)
  Sender: FDA-Public Use
  Company Number: 007702

PATIENT
  Sex: Female
  Weight: 52 kg

DRUGS (9)
  1. CERTOLIZUMAB PEGOL (CERTOLIZUMAB PEGOL) [Suspect]
     Indication: RHEUMATOID ARTHRITIS
     Dosage: 400 MG 1X/2 WEEKS, STUDY CDP870-050 SUBCUTANEOUS), 400MG 1X/2WEEKS SUBCUTANEOUS), 200 MG 1X/2 WEEKS
     Route: 058
     Dates: start: 20051227, end: 20060613
  2. CERTOLIZUMAB PEGOL (CERTOLIZUMAB PEGOL) [Suspect]
     Indication: RHEUMATOID ARTHRITIS
     Dosage: 400 MG 1X/2 WEEKS, STUDY CDP870-050 SUBCUTANEOUS), 400MG 1X/2WEEKS SUBCUTANEOUS), 200 MG 1X/2 WEEKS
     Route: 058
     Dates: start: 20060613, end: 20080218
  3. CERTOLIZUMAB PEGOL (CERTOLIZUMAB PEGOL) [Suspect]
     Indication: RHEUMATOID ARTHRITIS
     Dosage: 400 MG 1X/2 WEEKS, STUDY CDP870-050 SUBCUTANEOUS), 400MG 1X/2WEEKS SUBCUTANEOUS), 200 MG 1X/2 WEEKS
     Route: 058
     Dates: start: 20080218, end: 20091207
  4. NIMESULIDE [Concomitant]
  5. METHOTREXAT [Concomitant]
  6. ANAFRANIL [Concomitant]
  7. LORAFEN [Concomitant]
  8. PERNAZIUM [Concomitant]
  9. FOLIC ACID [Concomitant]

REACTIONS (3)
  - BLOOD SODIUM DECREASED [None]
  - MENTAL DISORDER [None]
  - RENAL COLIC [None]
